FAERS Safety Report 6574942-5 (Version None)
Quarter: 2010Q1

REPORT INFORMATION
  Report Type: 
  Country: None (occurrence: None)
  Receive Date: 20100209
  Receipt Date: 20090908
  Transmission Date: 20100710
  Serious: Yes (Hospitalization)
  Sender: FDA-Public Use
  Company Number: DE-CELGENEUS-THADE200700304

PATIENT
  Sex: Male
  Weight: 90 kg

DRUGS (11)
  1. THALIDOMIDE [Suspect]
     Indication: MULTIPLE MYELOMA
     Route: 048
     Dates: start: 20070518, end: 20070917
  2. THALIDOMIDE [Suspect]
     Route: 048
     Dates: start: 20070924
  3. DEXAMETHASONE [Suspect]
     Indication: MULTIPLE MYELOMA
     Route: 048
     Dates: start: 20070518
  4. PANTOPRAZOLE [Concomitant]
     Indication: GASTRITIS PROPHYLAXIS
     Route: 048
     Dates: start: 20070101
  5. ISOSORBIDE MONONITRATE [Concomitant]
     Route: 048
     Dates: start: 20070101
  6. MOLSIDOMINE [Concomitant]
     Route: 048
     Dates: start: 20070101
  7. ALLOPURINOL [Concomitant]
     Route: 048
     Dates: start: 20070101
  8. DICLOFENAC [Concomitant]
     Indication: ANALGESIC THERAPY
     Route: 048
     Dates: start: 20070101
  9. SULTAMICILLIN [Concomitant]
     Indication: BACTERIAL INFECTION
     Route: 048
     Dates: start: 20070910
  10. METRONIDAZOLE [Concomitant]
     Indication: BACTERIAL INFECTION
     Route: 048
     Dates: start: 20070910
  11. ANTIHYPERTENSIVE DRUG [Concomitant]
     Indication: HYPERTENSION

REACTIONS (2)
  - HYPOXIA [None]
  - OEDEMA [None]
